FAERS Safety Report 4740373-3 (Version None)
Quarter: 2005Q3

REPORT INFORMATION
  Report Type: 
  Country: None (occurrence: None)
  Receive Date: 20050803
  Receipt Date: 20050407
  Transmission Date: 20060218
  Serious: Yes (Other)
  Sender: FDA-Public Use
  Company Number: 2005-04-0867

PATIENT
  Age: 50 Year
  Sex: Female

DRUGS (1)
  1. INTRON A [Suspect]
     Indication: HEPATITIS C
     Dates: start: 20000101, end: 20000101

REACTIONS (2)
  - DEPRESSION [None]
  - HYPOTHYROIDISM [None]
